FAERS Safety Report 5966638-5 (Version None)
Quarter: 2008Q4

REPORT INFORMATION
  Report Type: 
  Country: None (occurrence: None)
  Receive Date: 20081125
  Receipt Date: 20080929
  Transmission Date: 20090506
  Serious: No
  Sender: FDA-Public Use
  Company Number: US-AMGEN-KDL310209

PATIENT
  Sex: Female

DRUGS (4)
  1. ENBREL [Suspect]
     Indication: RHEUMATOID ARTHRITIS
     Route: 058
     Dates: start: 20031201
  2. ARAVA [Concomitant]
     Route: 048
  3. PLAQUENIL [Concomitant]
     Route: 048
  4. SULINDAC [Concomitant]
     Route: 048

REACTIONS (1)
  - PSORIASIS [None]
